FAERS Safety Report 9186536 (Version 4)
Quarter: 2014Q2

REPORT INFORMATION
  Report Type: Spontaneous
  Country: US (occurrence: US)
  Receive Date: 20130325
  Receipt Date: 20140521
  Transmission Date: 20141212
  Serious: No
  Sender: FDA-Public Use
  Company Number: US-PFIZER INC-2013093654

PATIENT
  Age: 53 Year
  Sex: Female
  Weight: 103.4 kg

DRUGS (1)
  1. PRISTIQ [Suspect]
     Indication: DEPRESSION
     Dosage: 100 MG, 1X/DAY
     Route: 048
     Dates: start: 2006, end: 20130319

REACTIONS (2)
  - Urticaria [Recovered/Resolved]
  - Product quality issue [Unknown]
